FAERS Safety Report 4996720-0 (Version None)
Quarter: 2006Q2

REPORT INFORMATION
  Report Type: 
  Country: None (occurrence: None)
  Receive Date: 20060509
  Receipt Date: 20050422
  Transmission Date: 20061013
  Serious: Yes (Death, Hospitalization)
  Sender: FDA-Public Use
  Company Number: US-MERCK-0504USA04442

PATIENT
  Age: 68 Year
  Sex: Male
  Weight: 100 kg

DRUGS (3)
  1. VIOXX [Suspect]
     Indication: PAIN MANAGEMENT
     Route: 048
     Dates: start: 20000405, end: 20030327
  2. VIOXX [Suspect]
     Indication: ARTHRALGIA
     Route: 048
     Dates: start: 20000405, end: 20030327
  3. CARDIZEM CD [Concomitant]
     Indication: PALPITATIONS
     Route: 048
     Dates: start: 19990519

REACTIONS (6)
  - CARDIAC ARREST [None]
  - CYST [None]
  - DIVERTICULUM INTESTINAL [None]
  - HAEMORRHOIDS [None]
  - MYOCARDIAL INFARCTION [None]
  - RECTAL POLYP [None]
